FAERS Safety Report 5016629-6 (Version None)
Quarter: 2006Q2

REPORT INFORMATION
  Report Type: 
  Country: None (occurrence: None)
  Receive Date: 20060419
  Receipt Date: 20060112
  Transmission Date: 20061013
  Serious: No
  Sender: FDA-Public Use
  Company Number: US200601002103

PATIENT
  Sex: Female

DRUGS (4)
  1. ALIMTA [Suspect]
     Indication: NON-SMALL CELL LUNG CANCER
     Dates: start: 20060105
  2. FOLIC ACID [Concomitant]
  3. CYANOCOBALAMIN [Concomitant]
  4. DECADRON SRC [Concomitant]

REACTIONS (7)
  - BALANCE DISORDER [None]
  - DYSPEPSIA [None]
  - HERPES SIMPLEX [None]
  - NEUROPATHY PERIPHERAL [None]
  - ORAL PAIN [None]
  - PAIN [None]
  - PYREXIA [None]
